FAERS Safety Report 5460099-0 (Version None)
Quarter: 2007Q3

REPORT INFORMATION
  Report Type: 
  Country: None (occurrence: None)
  Receive Date: 20070919
  Receipt Date: 20070914
  Transmission Date: 20080115
  Serious: Yes (Death, Life-Threatening)
  Sender: FDA-Public Use
  Company Number: AT-ASTRAZENECA-2007PK01718

PATIENT
  Age: 96 Year
  Sex: Female
  Weight: 55 kg

DRUGS (4)
  1. SEROQUEL [Suspect]
     Route: 048
     Dates: start: 20070803
  2. LANITOP [Concomitant]
  3. TRITTICO [Concomitant]
  4. HALCION [Concomitant]

REACTIONS (1)
  - PULMONARY OEDEMA [None]
